FAERS Safety Report 6120581-X (Version None)
Quarter: 2009Q1

REPORT INFORMATION
  Report Type: 
  Country: None (occurrence: None)
  Receive Date: 20090317
  Receipt Date: 20090316
  Transmission Date: 20090719
  Serious: Yes (Death)
  Sender: FDA-Public Use
  Company Number: US-ASTRAZENECA-2009UW06690

PATIENT
  Age: 50 Year
  Sex: Male

DRUGS (2)
  1. SYMBICORT [Suspect]
     Indication: LUNG NEOPLASM MALIGNANT
     Dosage: 160/4.5 UG BID
     Route: 055
  2. SPIRIVA [Concomitant]

REACTIONS (1)
  - CONVULSION [None]
